FAERS Safety Report 12442533 (Version 1)
Quarter: 2016Q2

REPORT INFORMATION
  Report Type: Spontaneous
  Country: US (occurrence: US)
  Receive Date: 20160607
  Receipt Date: 20160607
  Transmission Date: 20160815
  Serious: Yes (Other)
  Sender: FDA-Public Use
  Company Number: PHHY2016US074832

PATIENT
  Age: 48 Year
  Sex: Male

DRUGS (2)
  1. NILOTINIB [Suspect]
     Active Substance: NILOTINIB
     Indication: DIFFUSE LARGE B-CELL LYMPHOMA STAGE I
     Dosage: 200 MG, BID
  2. JAKAFI [Suspect]
     Active Substance: RUXOLITINIB
     Indication: PRIMARY MYELOFIBROSIS
     Dosage: 5 MG, BID, FOR SIX MONTHS
     Route: 065

REACTIONS (7)
  - Leukocytosis [Unknown]
  - Second primary malignancy [Unknown]
  - Thrombocytopenia [Unknown]
  - Weight increased [Unknown]
  - Primary myelofibrosis [Unknown]
  - Splenomegaly [Unknown]
  - Anaemia [Unknown]
